FAERS Safety Report 5086008-4 (Version None)
Quarter: 2006Q3

REPORT INFORMATION
  Report Type: 
  Country: None (occurrence: None)
  Receive Date: 20060817
  Receipt Date: 20060731
  Transmission Date: 20061208
  Serious: Yes (Hospitalization)
  Sender: FDA-Public Use
  Company Number: GBR-2006-0002386

PATIENT
  Age: 58 Year
  Sex: Female

DRUGS (5)
  1. DHC CONTINUS 60 MG (DIHYDROCODEINE BITARTRATE)PROLONGED-RELEASE TABLET [Suspect]
     Indication: BACK PAIN
     Dosage: 60 MG, DAILY, ORAL
     Route: 048
     Dates: start: 20060613, end: 20060614
  2. CANDESARTAN (CANDESARTAN) [Concomitant]
  3. OMEPRAZOLE [Concomitant]
  4. ATORVASTATIN CALCIUM [Concomitant]
  5. CLOPIDOGREL [Concomitant]

REACTIONS (7)
  - ABDOMINAL PAIN UPPER [None]
  - BRADYCARDIA [None]
  - DIZZINESS [None]
  - HYPERHIDROSIS [None]
  - HYPOTENSION [None]
  - NAUSEA [None]
  - SYNCOPE VASOVAGAL [None]
